FAERS Safety Report 15599727 (Version 4)
Quarter: 2019Q3

REPORT INFORMATION
  Report Type: Report from Study
  Country: US (occurrence: US)
  Receive Date: 20181108
  Receipt Date: 20190903
  Transmission Date: 20191004
  Serious: Yes (Hospitalization)
  Sender: FDA-Public Use
  Company Number: US-ACTELION-A-US2018-168842

PATIENT
  Age: 77 Year
  Sex: Female
  Weight: 79.37 kg

DRUGS (5)
  1. ADEMPAS [Concomitant]
     Active Substance: RIOCIGUAT
     Dosage: 1.5 MG, UNK
  2. ADEMPAS [Concomitant]
     Active Substance: RIOCIGUAT
     Dosage: 2 MG, UNK
  3. OPSUMIT [Suspect]
     Active Substance: MACITENTAN
     Indication: PULMONARY ARTERIAL HYPERTENSION
     Dosage: 10 MG, QD
     Route: 048
  4. OPSUMIT [Suspect]
     Active Substance: MACITENTAN
     Dosage: 10 MG, QD
     Route: 048
  5. ADEMPAS [Concomitant]
     Active Substance: RIOCIGUAT
     Dosage: UNK
     Dates: start: 20180501

REACTIONS (38)
  - Balance disorder [Unknown]
  - Malaise [Unknown]
  - Dry mouth [Recovering/Resolving]
  - Tongue haemorrhage [Unknown]
  - Erythema [Unknown]
  - Memory impairment [Recovered/Resolved]
  - Diarrhoea [Unknown]
  - Swelling face [Unknown]
  - Weight increased [Unknown]
  - Mouth haemorrhage [Recovering/Resolving]
  - Swelling [Unknown]
  - Insomnia [Unknown]
  - Dysentery [Unknown]
  - Abdominal pain upper [Unknown]
  - Oxygen saturation decreased [Unknown]
  - Secretion discharge [Unknown]
  - Chest discomfort [Recovered/Resolved]
  - Pain in extremity [Unknown]
  - Gastroenteritis [Unknown]
  - Dizziness [Unknown]
  - Dyspnoea [Unknown]
  - Tongue discolouration [Unknown]
  - Headache [Unknown]
  - Ocular hyperaemia [Unknown]
  - Fatigue [Unknown]
  - Presyncope [Recovered/Resolved]
  - Dyspnoea exertional [Unknown]
  - Haemoptysis [Unknown]
  - Pain in jaw [Unknown]
  - Pain [Unknown]
  - Decreased appetite [Unknown]
  - Vomiting [Unknown]
  - Hypotension [Unknown]
  - Oedema peripheral [Unknown]
  - Hypersensitivity [Recovered/Resolved]
  - Fluid retention [Unknown]
  - Food poisoning [Unknown]
  - Retching [Unknown]

NARRATIVE: CASE EVENT DATE: 20180506
